FAERS Safety Report 4300810-5 (Version None)
Quarter: 2004Q1

REPORT INFORMATION
  Report Type: 
  Country: None (occurrence: None)
  Receive Date: 20040218
  Receipt Date: 20040204
  Transmission Date: 20041129
  Serious: Yes (Other)
  Sender: FDA-Public Use
  Company Number: USA030845030

PATIENT
  Age: 80 Year
  Sex: Female

DRUGS (11)
  1. FORTEO [Suspect]
     Indication: OSTEOPOROSIS
     Dosage: 20 UG/DAY
     Dates: start: 20030214
  2. TRENTAL [Concomitant]
  3. ULTRAM [Concomitant]
  4. PRILOSEC [Concomitant]
  5. CELEBREX [Concomitant]
  6. LASIX [Concomitant]
  7. KLONOPIN [Concomitant]
  8. POTASSIUM [Concomitant]
  9. SYNTHROID [Concomitant]
  10. FOSAMAX [Concomitant]
  11. CLINDAMYCIN [Concomitant]

REACTIONS (7)
  - INJECTION SITE HAEMORRHAGE [None]
  - INJECTION SITE IRRITATION [None]
  - MUSCLE CRAMP [None]
  - PYREXIA [None]
  - SQUAMOUS CELL CARCINOMA [None]
  - URINE ODOUR ABNORMAL [None]
  - VIRAL INFECTION [None]
